FAERS Safety Report 20195008 (Version 1)
Quarter: 2021Q4

REPORT INFORMATION
  Report Type: Spontaneous
  Country: US (occurrence: None)
  Receive Date: 20211216
  Receipt Date: 20211216
  Transmission Date: 20220303
  Serious: Yes (Hospitalization)
  Sender: FDA-Public Use
  Company Number: None

PATIENT
  Age: 61 Year
  Sex: Male
  Weight: 156.5 kg

DRUGS (1)
  1. NINTEDANIB [Suspect]
     Active Substance: NINTEDANIB
     Indication: Interstitial lung disease
     Dosage: FREQUENCY : TWICE A DAY;?
     Route: 048
     Dates: start: 20210602, end: 20211119

REACTIONS (2)
  - Flank pain [None]
  - Liver function test increased [None]

NARRATIVE: CASE EVENT DATE: 20211119
